FAERS Safety Report 18346319 (Version 1)
Quarter: 2020Q4

REPORT INFORMATION
  Report Type: Spontaneous
  Country: FR (occurrence: FR)
  Receive Date: 20201005
  Receipt Date: 20201005
  Transmission Date: 20210114
  Serious: Yes (Hospitalization)
  Sender: FDA-Public Use
  Company Number: FR-AMERICAN REGENT INC-2020002048

PATIENT
  Age: 64 Year
  Sex: Female

DRUGS (2)
  1. FERINJECT [Suspect]
     Active Substance: FERRIC CARBOXYMALTOSE
     Indication: MINERAL SUPPLEMENTATION
     Dosage: 1 GM,1 IN 1 TOTAL
     Route: 042
     Dates: start: 20200908, end: 20200908
  2. JAVLOR [Concomitant]
     Active Substance: VINFLUNINE DITARTRATE
     Indication: BLADDER CANCER
     Dosage: 512 MG, 1 IN 1 CYCLICAL
     Route: 042
     Dates: start: 20200908, end: 20200908

REACTIONS (4)
  - Hypersensitivity [Recovered/Resolved]
  - Product use in unapproved indication [Unknown]
  - Off label use [Unknown]
  - Dysphagia [Recovered/Resolved]

NARRATIVE: CASE EVENT DATE: 20200908
